FAERS Safety Report 16479798 (Version 1)
Quarter: 2019Q2

REPORT INFORMATION
  Report Type: Spontaneous
  Country: DE (occurrence: DE)
  Receive Date: 20190626
  Receipt Date: 20190626
  Transmission Date: 20190711
  Serious: Yes (Other)
  Sender: FDA-Public Use
  Company Number: DE-MYLANLABS-2019M1057593

PATIENT
  Sex: Female

DRUGS (4)
  1. EVEROLIMUS. [Suspect]
     Active Substance: EVEROLIMUS
     Indication: IMMUNOSUPPRESSION
     Dosage: 2 MILLIGRAM, QD
     Route: 048
     Dates: start: 20170606, end: 20170901
  2. DECORTIN [Concomitant]
     Active Substance: PREDNISONE
     Indication: IMMUNOSUPPRESSION
     Dosage: 5 MILLIGRAM, QD
     Route: 048
     Dates: start: 20160228
  3. AMLODIPINE [Concomitant]
     Active Substance: AMLODIPINE BESYLATE
     Indication: HYPERTENSION
     Dosage: 5 MG, QD
     Route: 048
     Dates: start: 20160228
  4. BELATACEPT [Concomitant]
     Active Substance: BELATACEPT
     Indication: IMMUNOSUPPRESSION
     Dosage: 350 MILLIGRAM, QD
     Route: 042
     Dates: start: 201603

REACTIONS (2)
  - Proteinuria [Recovered/Resolved]
  - Product use in unapproved indication [Unknown]

NARRATIVE: CASE EVENT DATE: 20170620
